FAERS Safety Report 9859685 (Version 2)
Quarter: 2014Q1

REPORT INFORMATION
  Report Type: Spontaneous
  Country: US (occurrence: US)
  Receive Date: 20140131
  Receipt Date: 20140228
  Transmission Date: 20141002
  Serious: Yes (Life-Threatening, Hospitalization, Other)
  Sender: FDA-Public Use
  Company Number: US-GLAXOSMITHKLINE-A1059086A

PATIENT
  Age: 63 Year
  Sex: Male
  Weight: 85 kg

DRUGS (1)
  1. VOTRIENT [Suspect]
     Indication: RENAL CELL CARCINOMA
     Route: 048
     Dates: start: 20131113, end: 20131218

REACTIONS (5)
  - Convulsion [Recovered/Resolved]
  - Coma [Recovered/Resolved]
  - Loss of consciousness [Recovered/Resolved]
  - Adverse event [Recovered/Resolved]
  - Blood pressure increased [Recovered/Resolved]
